FAERS Safety Report 12244205 (Version 8)
Quarter: 2016Q4

REPORT INFORMATION
  Report Type: Spontaneous
  Country: CA (occurrence: CA)
  Receive Date: 20160407
  Receipt Date: 20161014
  Transmission Date: 20170207
  Serious: Yes (Hospitalization, Other)
  Sender: FDA-Public Use
  Company Number: CA-ROCHE-1737923

PATIENT
  Age: 48 Year
  Sex: Male

DRUGS (7)
  1. SINGULAIR [Concomitant]
     Active Substance: MONTELUKAST SODIUM
     Indication: PRODUCT USED FOR UNKNOWN INDICATION
     Dosage: 10 MG, QD
     Route: 065
  2. VENTOLINE [Concomitant]
     Active Substance: ALBUTEROL
     Indication: PRODUCT USED FOR UNKNOWN INDICATION
     Dosage: PRN
     Route: 065
  3. ADVAIR HFA [Concomitant]
     Active Substance: FLUTICASONE PROPIONATE\SALMETEROL XINAFOATE
     Indication: PRODUCT USED FOR UNKNOWN INDICATION
     Dosage: 1 DF (PUFF) (500 UG), BID
     Route: 065
  4. REACTINE (CANADA) [Concomitant]
     Active Substance: CETIRIZINE HYDROCHLORIDE
     Indication: PRODUCT USED FOR UNKNOWN INDICATION
     Dosage: 20 MG, QD
     Route: 065
  5. PULMICORT TURBUHALER [Concomitant]
     Active Substance: BUDESONIDE
     Indication: PRODUCT USED FOR UNKNOWN INDICATION
     Dosage: 4 DF (PUFF) (400 UG), BID
     Route: 065
  6. XOLAIR [Suspect]
     Active Substance: OMALIZUMAB
     Indication: ASTHMA
     Dosage: 225 MG, BIW
     Route: 058
     Dates: start: 20150603
  7. VENTOLINE [Concomitant]
     Active Substance: ALBUTEROL
     Route: 065

REACTIONS (10)
  - Forced expiratory volume decreased [Unknown]
  - Adrenal insufficiency [Unknown]
  - Middle insomnia [Unknown]
  - Cystic fibrosis [Unknown]
  - Dyspnoea [Unknown]
  - Lung abscess [Unknown]
  - General physical health deterioration [Unknown]
  - Pulmonary function test abnormal [Unknown]
  - Malaise [Recovering/Resolving]
  - Asthma [Unknown]

NARRATIVE: CASE EVENT DATE: 20160405
